FAERS Safety Report 15098889 (Version 2)
Quarter: 2018Q3

REPORT INFORMATION
  Report Type: Spontaneous
  Country: IL (occurrence: IL)
  Receive Date: 20180702
  Receipt Date: 20180803
  Transmission Date: 20181010
  Serious: Yes (Other)
  Sender: FDA-Public Use
  Company Number: IL-PFIZER INC-2018027235

PATIENT
  Age: 26 Year
  Sex: Female

DRUGS (3)
  1. CANDIDA SUPPORT [Concomitant]
     Dosage: UNK
  2. SAYANA [Suspect]
     Active Substance: MEDROXYPROGESTERONE
     Indication: MENSTRUAL CYCLE MANAGEMENT
     Dosage: 104 MG INJECTION, EVERY 3 MONTHS, USED FOR 6 MONTHS
     Dates: start: 20171022
  3. PROBIOTICS [Concomitant]
     Active Substance: PROBIOTICS NOS
     Dosage: UNK

REACTIONS (6)
  - Product use in unapproved indication [Unknown]
  - Injection site nodule [Not Recovered/Not Resolved]
  - Menometrorrhagia [Unknown]
  - Injection site induration [Not Recovered/Not Resolved]
  - Injection site indentation [Not Recovered/Not Resolved]
  - Injection site pain [Unknown]

NARRATIVE: CASE EVENT DATE: 20171022
